FAERS Safety Report 8843517 (Version 2)
Quarter: 2013Q2

REPORT INFORMATION
  Report Type: Spontaneous
  Country: JP (occurrence: JP)
  Receive Date: 20121016
  Receipt Date: 20130429
  Transmission Date: 20140414
  Serious: Yes (Death, Other)
  Sender: FDA-Public Use
  Company Number: JP-ABBOTT-12P-087-0935454-00

PATIENT
  Age: 88 Year
  Sex: Female
  Weight: 42 kg

DRUGS (4)
  1. HUMIRA 40 MG/ 0.8 ML PRE-FILLED SYRINGE [Suspect]
     Indication: RHEUMATOID ARTHRITIS
     Route: 058
     Dates: start: 20110905, end: 20120423
  2. RHEUMATREX [Suspect]
     Indication: RHEUMATOID ARTHRITIS
     Dates: start: 20090317, end: 20101115
  3. RHEUMATREX [Suspect]
     Dates: start: 20101116
  4. SALAZOSULFAPYRIDINE [Concomitant]
     Indication: RHEUMATOID ARTHRITIS
     Dates: start: 20081104

REACTIONS (4)
  - Immunosuppression [Unknown]
  - Pneumonia [Fatal]
  - Neck pain [Unknown]
  - Arthralgia [Unknown]
